FAERS Safety Report 5340390-9 (Version None)
Quarter: 2007Q2

REPORT INFORMATION
  Report Type: 
  Country: None (occurrence: None)
  Receive Date: 20070531
  Receipt Date: 20070516
  Transmission Date: 20071010
  Serious: Yes (Hospitalization)
  Sender: FDA-Public Use
  Company Number: AU-SANOFI-SYNTHELABO-A01200703403

PATIENT
  Age: 48 Year
  Sex: Male

DRUGS (3)
  1. ALCOHOL [Concomitant]
     Indication: ALCOHOL USE
     Route: 048
  2. STILNOX [Suspect]
     Indication: SLEEP DISORDER
     Route: 048
  3. GLUCOSAMINE [Concomitant]
     Indication: DRUG USE FOR UNKNOWN INDICATION
     Dosage: UNK
     Route: 065

REACTIONS (4)
  - AMNESIA [None]
  - FALL [None]
  - MULTIPLE INJURIES [None]
  - SLEEP WALKING [None]
